FAERS Safety Report 9405815 (Version 1)
Quarter: 2013Q3

REPORT INFORMATION
  Report Type: Spontaneous
  Country: US (occurrence: US)
  Receive Date: 20130717
  Receipt Date: 20130717
  Transmission Date: 20140515
  Serious: Yes (Life-Threatening, Hospitalization, Disabling, Other)
  Sender: FDA-Public Use
  Company Number: US-GLAXOSMITHKLINE-A1031989A

PATIENT
  Age: 66 Year
  Sex: Female

DRUGS (9)
  1. PROMACTA [Suspect]
     Indication: THROMBOCYTOPENIA
     Dosage: 25MG PER DAY
     Route: 048
     Dates: start: 20130411, end: 20130610
  2. ALBUTEROL INHALER [Concomitant]
  3. ASPIRIN [Concomitant]
  4. ATORVASTATIN [Concomitant]
  5. HUMALOG [Concomitant]
     Dosage: 20UNIT BEFORE MEALS
  6. ISOSORBIDE [Concomitant]
  7. LEVEMIR [Concomitant]
     Dosage: 60UNIT AT NIGHT
  8. LISINOPRIL [Concomitant]
     Dosage: 5MG PER DAY
  9. METOPROLOL [Concomitant]
     Dosage: 25MG PER DAY

REACTIONS (1)
  - Myocardial infarction [Recovered/Resolved]
